FAERS Safety Report 17458778 (Version 1)
Quarter: 2020Q1

REPORT INFORMATION
  Report Type: Spontaneous
  Country: US (occurrence: US)
  Receive Date: 20200212
  Receipt Date: 20200212
  Transmission Date: 20200409
  Serious: Yes (Hospitalization)
  Sender: FDA-Public Use
  Company Number: None

PATIENT
  Age: 29 Year
  Sex: Female

DRUGS (7)
  1. CBD/CBD OIL VAPE [Suspect]
     Active Substance: CANNABIDIOL\DEVICE\HERBALS
  2. PRISTIQ EXTENDED-RELEASE [Suspect]
     Active Substance: DESVENLAFAXINE SUCCINATE
  3. BUMBLE BEE VAPE CARTRIDGES: THIN MINT AND CANDY LAND FLAVORS [Suspect]
     Active Substance: CANNABIDIOL\.DELTA.8-TETRAHYDROCANNABINOL\DEVICE\HERBALS
  4. NJOY WITH BLUEBERRY/MINT FLAVORS [DEVICE\NICOTINE] [Suspect]
     Active Substance: DEVICE\NICOTINE
  5. GABAPENTIN. [Suspect]
     Active Substance: GABAPENTIN
  6. MARIJUANA VAPE [Suspect]
     Active Substance: CANNABIS SATIVA SUBSP. INDICA TOP\DEVICE
  7. THC VAPE [Suspect]
     Active Substance: .DELTA.8-TETRAHYDROCANNABINOL\DEVICE\HERBALS

REACTIONS (9)
  - Device use issue [None]
  - Dyspnoea [None]
  - Painful respiration [None]
  - Diarrhoea [None]
  - Wheezing [None]
  - Nausea [None]
  - Vomiting [None]
  - Chest pain [None]
  - Cough [None]

NARRATIVE: CASE EVENT DATE: 20191010
